FAERS Safety Report 15017934 (Version 1)
Quarter: 2018Q2

REPORT INFORMATION
  Report Type: Spontaneous
  Country: US (occurrence: US)
  Receive Date: 20180615
  Receipt Date: 20180615
  Transmission Date: 20180711
  Serious: Yes (Hospitalization)
  Sender: FDA-Public Use
  Company Number: US-ASTRAZENECA-2018SE49252

PATIENT
  Sex: Male
  Weight: 231.3 kg

DRUGS (1)
  1. BYDUREON [Suspect]
     Active Substance: EXENATIDE
     Indication: TYPE 2 DIABETES MELLITUS
     Route: 058
     Dates: start: 20180111

REACTIONS (3)
  - Sepsis [Unknown]
  - Necrotising fasciitis [Unknown]
  - Injection site pruritus [Not Recovered/Not Resolved]
